FAERS Safety Report 4607495-9 (Version None)
Quarter: 2005Q1

REPORT INFORMATION
  Report Type: 
  Country: None (occurrence: None)
  Receive Date: 20050309
  Receipt Date: 20050221
  Transmission Date: 20050727
  Serious: Yes (Disabling)
  Sender: FDA-Public Use
  Company Number: 10382

PATIENT
  Age: 11 Year
  Sex: Female

DRUGS (5)
  1. METHOTREXATE [Suspect]
     Dosage: 20 MG WEEKLY
     Route: 058
     Dates: start: 19930101
  2. ETANERCEPT [Suspect]
     Indication: RHEUMATOID ARTHRITIS
     Dosage: 8.75 MG 2/WK
     Route: 058
     Dates: start: 20000727
  3. TRIAMCINOLONE [Concomitant]
  4. PREDNISOLONE [Concomitant]
  5. FOLIC ACID [Concomitant]

REACTIONS (5)
  - ARTHROPATHY [None]
  - BODY HEIGHT DECREASED [None]
  - BONE DENSITY DECREASED [None]
  - SPINAL COMPRESSION FRACTURE [None]
  - VOMITING PSYCHOGENIC [None]
